FAERS Safety Report 23614647 (Version 5)
Quarter: 2024Q2

REPORT INFORMATION
  Report Type: Spontaneous
  Country: US (occurrence: US)
  Receive Date: 20240311
  Receipt Date: 20240412
  Transmission Date: 20240717
  Serious: No
  Sender: FDA-Public Use
  Company Number: US-UNITED THERAPEUTICS-UNT-2024-006782

PATIENT
  Age: 67 Year
  Sex: Female

DRUGS (6)
  1. REMODULIN [Suspect]
     Active Substance: TREPROSTINIL
     Indication: Pulmonary arterial hypertension
     Dosage: 0.02549 ?G/KG, CONTINUING
     Route: 058
  2. REMODULIN [Suspect]
     Active Substance: TREPROSTINIL
     Dosage: 0.02451 ?G/KG, CONTINUING
     Route: 058
  3. REMODULIN [Suspect]
     Active Substance: TREPROSTINIL
     Dosage: UNK, CONTINUING
     Route: 058
     Dates: start: 202105
  4. PEPCID [Suspect]
     Active Substance: FAMOTIDINE
     Indication: Nausea
     Dosage: UNK
     Route: 065
  5. ONDANSETRON [Suspect]
     Active Substance: ONDANSETRON
     Indication: Nausea
     Dosage: UNK
     Route: 065
  6. OPSUMIT [Concomitant]
     Active Substance: MACITENTAN
     Indication: Product used for unknown indication
     Dosage: UNK
     Route: 065

REACTIONS (27)
  - Paraesthesia [Unknown]
  - Feeling hot [Unknown]
  - Chills [Unknown]
  - Rhinorrhoea [Unknown]
  - Paranasal sinus hypersecretion [Unknown]
  - Productive cough [Unknown]
  - Sputum discoloured [Unknown]
  - Diarrhoea [Unknown]
  - Dizziness [Not Recovered/Not Resolved]
  - Infusion site infection [Recovered/Resolved]
  - Device dislocation [Recovered/Resolved]
  - Vomiting [Unknown]
  - Cough [Unknown]
  - Skin warm [Unknown]
  - Fall [Recovered/Resolved with Sequelae]
  - Head injury [Unknown]
  - Headache [Not Recovered/Not Resolved]
  - Infusion site nodule [Recovering/Resolving]
  - Infusion site discolouration [Recovering/Resolving]
  - Infusion site pain [Recovering/Resolving]
  - Nausea [Not Recovered/Not Resolved]
  - Decreased appetite [Unknown]
  - Infusion site swelling [Unknown]
  - Illness [Unknown]
  - Weight decreased [Unknown]
  - Therapy non-responder [Unknown]
  - Dyspnoea [Not Recovered/Not Resolved]

NARRATIVE: CASE EVENT DATE: 20240301
